FAERS Safety Report 9916939 (Version 5)
Quarter: 2014Q3

REPORT INFORMATION
  Report Type: Spontaneous
  Country: CA (occurrence: CA)
  Receive Date: 20140221
  Receipt Date: 20140717
  Transmission Date: 20150326
  Serious: Yes (Other)
  Sender: FDA-Public Use
  Company Number: CA-GLAXOSMITHKLINE-A1017133A

PATIENT
  Age: 38 Year
  Sex: Female
  Weight: 75 kg

DRUGS (2)
  1. BENLYSTA [Suspect]
     Active Substance: BELIMUMAB
     Indication: SYSTEMIC LUPUS ERYTHEMATOSUS
     Dosage: 700MG SEE DOSAGE TEXT
     Route: 042
     Dates: start: 20130320
  2. METHOTREXATE [Suspect]
     Active Substance: METHOTREXATE
     Indication: PRODUCT USED FOR UNKNOWN INDICATION
     Dosage: 25MG UNKNOWN
     Route: 058

REACTIONS (17)
  - Fatigue [Not Recovered/Not Resolved]
  - Chills [Unknown]
  - Arthropathy [Unknown]
  - Nausea [Unknown]
  - Headache [Unknown]
  - Arthralgia [Not Recovered/Not Resolved]
  - Hyperhidrosis [Unknown]
  - Malaise [Unknown]
  - Depressed mood [Unknown]
  - Somnolence [Unknown]
  - Pyrexia [Unknown]
  - Tooth infection [Unknown]
  - Oropharyngeal pain [Unknown]
  - Mydriasis [Unknown]
  - Pain [Unknown]
  - Ankle fracture [Unknown]
  - Disability [Not Recovered/Not Resolved]

NARRATIVE: CASE EVENT DATE: 20131009
